FAERS Safety Report 15166592 (Version 1)
Quarter: 2018Q3

REPORT INFORMATION
  Report Type: Spontaneous
  Country: US (occurrence: US)
  Receive Date: 20180719
  Receipt Date: 20180719
  Transmission Date: 20181010
  Serious: Yes (Other)
  Sender: FDA-Public Use
  Company Number: US-TEIKOKU PHARMA USA-TPU2018-00435

PATIENT
  Sex: Female

DRUGS (16)
  1. APIXABAN [Concomitant]
     Active Substance: APIXABAN
  2. ATORVASTATIN [Concomitant]
     Active Substance: ATORVASTATIN
  3. CALCIUM 600+D3 [Concomitant]
     Active Substance: CALCIUM CARBONATE\VITAMIN D
  4. VITAMIN D3 [Concomitant]
     Active Substance: CHOLECALCIFEROL
  5. LEVOTHYROXINE. [Concomitant]
     Active Substance: LEVOTHYROXINE
  6. GABAPENTIN. [Concomitant]
     Active Substance: GABAPENTIN
  7. LOSARTAN POTASSIUM. [Concomitant]
     Active Substance: LOSARTAN POTASSIUM
  8. LACTULOSE. [Concomitant]
     Active Substance: LACTULOSE
     Dosage: 20G/30ML
  9. CULTURELLE [Concomitant]
     Active Substance: LACTOBACILLUS RHAMNOSUS
  10. LIDOCAINE PATCH [Suspect]
     Active Substance: LIDOCAINE
     Indication: BACK PAIN
     Route: 061
  11. DILTIAZEM. [Concomitant]
     Active Substance: DILTIAZEM
  12. ALLOPURINOL. [Concomitant]
     Active Substance: ALLOPURINOL
     Dosage: WHITE ROUND PILL WITH IMPRINT AL3
  13. CELECOXIB. [Concomitant]
     Active Substance: CELECOXIB
  14. LIDODERM [Suspect]
     Active Substance: LIDOCAINE
     Indication: BACK PAIN
     Route: 061
  15. BUPROPION HCL [Concomitant]
     Active Substance: BUPROPION HYDROCHLORIDE
  16. ACYCLOVIRCAP [Concomitant]

REACTIONS (4)
  - Hip arthroplasty [Unknown]
  - Incorrect drug administration duration [Unknown]
  - Oesophageal disorder [Unknown]
  - Drug ineffective for unapproved indication [Unknown]
